FAERS Safety Report 22331581 (Version 1)
Quarter: 2023Q2

REPORT INFORMATION
  Report Type: Spontaneous
  Country: US (occurrence: None)
  Receive Date: 20230516
  Receipt Date: 20230516
  Transmission Date: 20230721
  Serious: Yes (Death)
  Sender: FDA-Public Use
  Company Number: None

PATIENT
  Age: 60 Year
  Sex: Male

DRUGS (1)
  1. ARTESUNATE [Suspect]
     Active Substance: ARTESUNATE
     Indication: Malaria
     Dosage: OTHER FREQUENCY : 0, 12, 24 HOURS;?
     Route: 042
     Dates: start: 20220608, end: 20220619

REACTIONS (10)
  - Hypotension [None]
  - Shock [None]
  - Haemodialysis [None]
  - Blood creatinine increased [None]
  - Hepatic enzyme increased [None]
  - Aspartate aminotransferase increased [None]
  - Alanine aminotransferase increased [None]
  - Acidosis [None]
  - Pulseless electrical activity [None]
  - Cardio-respiratory arrest [None]

NARRATIVE: CASE EVENT DATE: 20220619
